FAERS Safety Report 8525911 (Version 3)
Quarter: 2013Q4

REPORT INFORMATION
  Report Type: Spontaneous
  Country: US (occurrence: US)
  Receive Date: 20120423
  Receipt Date: 20131206
  Transmission Date: 20140711
  Serious: Yes (Life-Threatening, Hospitalization, Other)
  Sender: FDA-Public Use
  Company Number: US-ASTRAZENECA-2011SE68539

PATIENT
  Age: 56 Year
  Sex: Female
  Weight: 62.1 kg

DRUGS (10)
  1. NEXIUM [Suspect]
     Indication: GASTROOESOPHAGEAL REFLUX DISEASE
     Route: 048
     Dates: end: 20130827
  2. MORPHINE [Concomitant]
     Indication: PAIN
     Route: 048
     Dates: start: 2000
  3. ROXYCODONE [Concomitant]
     Indication: PAIN
     Route: 048
     Dates: start: 2000
  4. SOMA [Concomitant]
     Indication: PAIN
     Route: 048
     Dates: start: 2000
  5. VALIUM [Concomitant]
     Indication: CARDIAC DISORDER
     Route: 048
     Dates: start: 2000
  6. REQUIP [Concomitant]
     Indication: RESTLESS LEGS SYNDROME
     Route: 048
     Dates: start: 2000
  7. MS CONTON [Concomitant]
  8. LOSARTAN POT [Concomitant]
  9. HORIZONT [Concomitant]
  10. ZIVACOR [Concomitant]

REACTIONS (10)
  - Cardiac arrest [Unknown]
  - Cerebrovascular accident [Unknown]
  - Fall [Unknown]
  - Gastrooesophageal reflux disease [Unknown]
  - Discomfort [Unknown]
  - Cardiac disorder [Unknown]
  - Choking [Unknown]
  - Malaise [Unknown]
  - Vomiting [Unknown]
  - Intentional drug misuse [Unknown]
